FAERS Safety Report 6939292-3 (Version None)
Quarter: 2010Q3

REPORT INFORMATION
  Report Type: 
  Country: None (occurrence: None)
  Receive Date: 20100824
  Receipt Date: 20100816
  Transmission Date: 20110219
  Serious: Yes (Other)
  Sender: FDA-Public Use
  Company Number: US-ABBOTT-10P-163-0663802-00

PATIENT
  Sex: Male

DRUGS (4)
  1. DEPAKOTE [Suspect]
     Indication: PSYCHOTIC DISORDER
     Dates: end: 20100701
  2. CLOZARIL [Suspect]
     Indication: PSYCHOTIC DISORDER
     Dates: start: 20100629
  3. CLOZARIL [Suspect]
  4. GEODON [Concomitant]
     Indication: PRODUCT USED FOR UNKNOWN INDICATION
     Dosage: TAPERED
     Dates: end: 20100714

REACTIONS (1)
  - FULL BLOOD COUNT ABNORMAL [None]
